FAERS Safety Report 7822844-6 (Version None)
Quarter: 2011Q4

REPORT INFORMATION
  Report Type: 
  Country: None (occurrence: None)
  Receive Date: 20111018
  Receipt Date: 20101119
  Transmission Date: 20120403
  Serious: No
  Sender: FDA-Public Use
  Company Number: US-ASTRAZENECA-2010SE55618

PATIENT
  Age: 61 Year
  Sex: Female
  Weight: 113.4 kg

DRUGS (2)
  1. SYMBICORT [Suspect]
     Indication: ASTHMA
     Dosage: 2 PUFFS, BID
     Route: 055
     Dates: start: 20100114, end: 20100203
  2. SYMBICORT [Suspect]
     Route: 055
     Dates: start: 20100201

REACTIONS (2)
  - ORAL PAIN [None]
  - RASH [None]
